FAERS Safety Report 12535261 (Version 1)
Quarter: 2016Q3

REPORT INFORMATION
  Report Type: Spontaneous
  Country: US (occurrence: US)
  Receive Date: 20160707
  Receipt Date: 20160707
  Transmission Date: 20161109
  Serious: Yes (Death)
  Sender: FDA-Public Use
  Company Number: US-CIPLA LTD.-2012US00412

PATIENT

DRUGS (8)
  1. CETUXIMAB [Suspect]
     Active Substance: CETUXIMAB
     Indication: OESOPHAGEAL SQUAMOUS CELL CARCINOMA
     Dosage: TWO CYCLES OF 400 MG/M2, LOADING DOSE ON DAY 1 FOLLOWED BY 250 MG/M2, DAYS 18, 15, 22, 29, AND 36
     Route: 042
  2. CETUXIMAB [Suspect]
     Active Substance: CETUXIMAB
     Dosage: 250 MG/M2, DAYS 43, 50, 57; 64, 71, AND 78, CONCURRENT CHEMOTHERAPY
     Route: 042
  3. TETRACYCLINE [Concomitant]
     Active Substance: TETRACYCLINE
     Indication: PROPHYLAXIS
     Dosage: UNK
     Route: 048
  4. IRINOTECAN [Suspect]
     Active Substance: IRINOTECAN
     Dosage: 65 MG/M2, DAYS 43, 50; AND 64, 71, CONCURRENT CHEMOTHERAPY
     Route: 042
  5. CISPLATIN. [Suspect]
     Active Substance: CISPLATIN
     Indication: OESOPHAGEAL SQUAMOUS CELL CARCINOMA
     Dosage: 30 MG/M2, ON DAYS 1, 8; AND DAYS 22, 29, INDUCTION CHEMOTHERAPY
     Route: 040
  6. CISPLATIN. [Suspect]
     Active Substance: CISPLATIN
     Dosage: 30 MG/M2, DAYS 43, 50; AND 64, 71, CONCURRENT CHEMOTHERAPY
     Route: 042
  7. CLINDAMYCIN [Concomitant]
     Active Substance: CLINDAMYCIN\CLINDAMYCIN PHOSPHATE
     Indication: PROPHYLAXIS
     Dosage: UNK
     Route: 061
  8. IRINOTECAN [Suspect]
     Active Substance: IRINOTECAN
     Indication: OESOPHAGEAL SQUAMOUS CELL CARCINOMA
     Dosage: 65 MG/M2, DAYS 1, 8; AND DAYS 22, 29, INDUCTION CHEMOTHERAPY
     Route: 065

REACTIONS (1)
  - Gastrointestinal necrosis [Fatal]
